FAERS Safety Report 17375284 (Version 2)
Quarter: 2020Q1

REPORT INFORMATION
  Report Type: Spontaneous
  Country: CA (occurrence: CA)
  Receive Date: 20200205
  Receipt Date: 20200227
  Transmission Date: 20200409
  Serious: Yes (Death, Other)
  Sender: FDA-Public Use
  Company Number: CA-PFIZER INC-2020050466

PATIENT
  Age: 64 Year
  Sex: Female

DRUGS (1)
  1. IBRANCE [Suspect]
     Active Substance: PALBOCICLIB
     Dosage: UNK
     Dates: start: 20200109, end: 20200123

REACTIONS (3)
  - Neoplasm progression [Unknown]
  - Neutropenic colitis [Fatal]
  - Sepsis [Unknown]

NARRATIVE: CASE EVENT DATE: 20200128
